FAERS Safety Report 10267101 (Version 2)
Quarter: 2014Q2

REPORT INFORMATION
  Report Type: Spontaneous
  Country: AR (occurrence: AR)
  Receive Date: 20140630
  Receipt Date: 20140630
  Transmission Date: 20141212
  Serious: Yes (Other)
  Sender: FDA-Public Use
  Company Number: AR-AMGEN INC.-ARGSP2014047237

PATIENT
  Age: 65 Year
  Sex: Female

DRUGS (1)
  1. ENBREL [Suspect]
     Indication: RHEUMATOID ARTHRITIS
     Dosage: 50 MG, WEEKLY
     Route: 065
     Dates: start: 20131029

REACTIONS (7)
  - Fall [Recovering/Resolving]
  - Chest injury [Recovering/Resolving]
  - Nervousness [Recovering/Resolving]
  - Mobility decreased [Recovering/Resolving]
  - Malaise [Recovering/Resolving]
  - Pain of skin [Recovering/Resolving]
  - Local swelling [Recovering/Resolving]
